FAERS Safety Report 10920968 (Version 1)
Quarter: 2015Q1

REPORT INFORMATION
  Report Type: Spontaneous
  Country: US (occurrence: US)
  Receive Date: 20150317
  Receipt Date: 20150317
  Transmission Date: 20150721
  Serious: Yes (Other)
  Sender: FDA-Public Use
  Company Number: US-PURDUE PHARMA-USA-2015-0120355

PATIENT
  Sex: Male

DRUGS (1)
  1. BUTRANS [Suspect]
     Active Substance: BUPRENORPHINE
     Indication: PAIN
     Dosage: UNK
     Route: 062

REACTIONS (5)
  - Application site infection [Unknown]
  - Application site erythema [Unknown]
  - Wrong technique in drug usage process [Unknown]
  - Application site vesicles [Unknown]
  - Application site discolouration [Not Recovered/Not Resolved]
